FAERS Safety Report 4887433-4 (Version None)
Quarter: 2006Q1

REPORT INFORMATION
  Report Type: 
  Country: None (occurrence: None)
  Receive Date: 20060118
  Receipt Date: 20060103
  Transmission Date: 20060701
  Serious: Yes (Hospitalization, Other)
  Sender: FDA-Public Use
  Company Number: 2006-01-0005

PATIENT
  Age: 48 Year
  Sex: Male

DRUGS (4)
  1. CLARITIN [Suspect]
     Indication: RHINITIS ALLERGIC
     Dosage: 10 MG QD* ORAL
     Route: 048
     Dates: start: 20000101, end: 20050701
  2. CLARITIN [Suspect]
     Indication: RHINITIS ALLERGIC
     Dosage: 10 MG QD* ORAL
     Route: 048
     Dates: end: 20050701
  3. CLARITIN [Suspect]
     Indication: RHINITIS ALLERGIC
     Dosage: 10 MG QD* ORAL
     Route: 048
     Dates: start: 20000101
  4. RANITIDINE [Concomitant]

REACTIONS (2)
  - EOSINOPHIL PERCENTAGE INCREASED [None]
  - HEPATITIS ACUTE [None]
